FAERS Safety Report 9100973 (Version 2)
Quarter: 2013Q1

REPORT INFORMATION
  Report Type: Spontaneous
  Country: FR (occurrence: FR)
  Receive Date: 20130214
  Receipt Date: 20130307
  Transmission Date: 20140127
  Serious: Yes (Hospitalization)
  Sender: FDA-Public Use
  Company Number: FR-PFIZER INC-2013055893

PATIENT
  Age: 72 Year
  Sex: Male

DRUGS (7)
  1. TAZOCILLINE [Suspect]
     Indication: LUNG DISORDER
     Dosage: UNK
     Route: 042
     Dates: start: 20121204, end: 20121206
  2. PREVISCAN [Concomitant]
  3. KARDEGIC [Concomitant]
  4. INEXIUM [Concomitant]
  5. TARDYFERON [Concomitant]
  6. DIFFU K [Concomitant]
  7. CORDARONE [Concomitant]

REACTIONS (3)
  - Dermatitis exfoliative [Recovered/Resolved]
  - Diarrhoea [Recovered/Resolved]
  - Eosinophilia [Recovered/Resolved]
